FAERS Safety Report 21761900 (Version 2)
Quarter: 2022Q4

REPORT INFORMATION
  Report Type: Report from Study
  Country: US (occurrence: US)
  Receive Date: 20221221
  Receipt Date: 20221226
  Transmission Date: 20230113
  Serious: No
  Sender: FDA-Public Use
  Company Number: US-ABBVIE-4225247

PATIENT
  Age: 75 Year
  Sex: Female

DRUGS (1)
  1. HUMIRA [Suspect]
     Active Substance: ADALIMUMAB
     Indication: Rheumatoid arthritis
     Dosage: CITRATE FREE, FORM STRENGTH: 40 MG
     Route: 058
     Dates: start: 20180101

REACTIONS (7)
  - Influenza [Recovering/Resolving]
  - Nephrolithiasis [Recovering/Resolving]
  - Cyst [Not Recovered/Not Resolved]
  - Musculoskeletal stiffness [Not Recovered/Not Resolved]
  - Influenza [Recovered/Resolved]
  - Pain [Not Recovered/Not Resolved]
  - Cyst [Recovered/Resolved]

NARRATIVE: CASE EVENT DATE: 20221201
